FAERS Safety Report 9865663 (Version 1)
Quarter: 2014Q1

REPORT INFORMATION
  Report Type: Spontaneous
  Country: US (occurrence: US)
  Receive Date: 20140203
  Receipt Date: 20140203
  Transmission Date: 20141002
  Serious: No
  Sender: FDA-Public Use
  Company Number: US-ALLERGAN-1306148US

PATIENT
  Age: 57 Year
  Sex: Female

DRUGS (4)
  1. RESTASIS [Suspect]
     Indication: DRY EYE
     Dosage: 2 GTT, BID
     Route: 047
     Dates: start: 201302
  2. COMBIGAN[R] [Concomitant]
     Indication: INTRAOCULAR PRESSURE INCREASED
     Dosage: 2 GTT, BID
     Route: 047
     Dates: start: 2008
  3. SOOTHE [Concomitant]
     Indication: DRY EYE
     Dosage: UNK UNK, PRN
     Route: 047
  4. STEROID FOR EYES NOS [Concomitant]
     Indication: PRODUCT USED FOR UNKNOWN INDICATION

REACTIONS (4)
  - Wrong technique in drug usage process [Unknown]
  - Erythema [Unknown]
  - Ocular hyperaemia [Not Recovered/Not Resolved]
  - Scleral hyperaemia [Unknown]
